FAERS Safety Report 8895414 (Version 1)
Quarter: 2012Q4

REPORT INFORMATION
  Report Type: 
  Country: TH (occurrence: TH)
  Receive Date: 20121108
  Receipt Date: 20121108
  Transmission Date: 20130627
  Serious: Yes (Other)
  Sender: FDA-Public Use
  Company Number: TH-ASTRAZENECA-2012SE82616

PATIENT
  Age: 65 Year
  Sex: Male

DRUGS (3)
  1. OMEPRAZOLE [Suspect]
     Route: 048
  2. BUSCOPAN [Suspect]
     Route: 048
  3. ANTACID [Suspect]
     Route: 048

REACTIONS (1)
  - Systemic mastocytosis [Unknown]
